FAERS Safety Report 24546438 (Version 4)
Quarter: 2025Q2

REPORT INFORMATION
  Report Type: Report from Study
  Country: CN (occurrence: CN)
  Receive Date: 20241024
  Receipt Date: 20250610
  Transmission Date: 20250717
  Serious: Yes (Hospitalization, Other)
  Sender: NOVARTIS
  Company Number: CN-002147023-NVSC2024CN205239

PATIENT
  Age: 75 Year
  Sex: Female
  Weight: 53 kg

DRUGS (8)
  1. FEMARA [Suspect]
     Active Substance: LETROZOLE
     Indication: Breast cancer metastatic
     Dosage: 2.5 MG, QD
     Route: 048
     Dates: start: 20230310
  2. FEMARA [Suspect]
     Active Substance: LETROZOLE
     Route: 065
     Dates: start: 20240909
  3. FEMARA [Suspect]
     Active Substance: LETROZOLE
     Route: 065
     Dates: start: 20240911
  4. GIREDESTRANT [Suspect]
     Active Substance: GIREDESTRANT
     Indication: Product used for unknown indication
     Dosage: UNK, QD
     Route: 048
     Dates: start: 20230310
  5. GIREDESTRANT [Suspect]
     Active Substance: GIREDESTRANT
     Route: 065
     Dates: start: 20240911
  6. BUDESONIDE [Concomitant]
     Active Substance: BUDESONIDE
     Indication: Asthma
     Dosage: 1 DOSAGE FORM, BID
     Route: 045
     Dates: start: 20230919
  7. BICYCLOL [Concomitant]
     Active Substance: BICYCLOL
     Indication: Hepatic function abnormal
     Dosage: 20 MG, TID
     Route: 048
     Dates: start: 20240716, end: 20240911
  8. PHOSPHOLIPID [Concomitant]
     Active Substance: PHOSPHOLIPID
     Indication: Hepatic function abnormal
     Dosage: 0.456 G, TID
     Route: 048
     Dates: start: 20240813, end: 20240909

REACTIONS (4)
  - Tachyarrhythmia [Recovered/Resolved]
  - Palpitations [Recovering/Resolving]
  - Atrial flutter [Recovered/Resolved]
  - Fibrin D dimer increased [Recovering/Resolving]

NARRATIVE: CASE EVENT DATE: 20240910
